FAERS Safety Report 19508963 (Version 1)
Quarter: 2021Q3

REPORT INFORMATION
  Report Type: Report from Study
  Country: ES (occurrence: ES)
  Receive Date: 20210708
  Receipt Date: 20210708
  Transmission Date: 20211014
  Serious: Yes (Hospitalization)
  Sender: FDA-Public Use
  Company Number: ES-BAUSCH-BL-2021-022230

PATIENT
  Age: 76 Year
  Sex: Male
  Weight: 65 kg

DRUGS (16)
  1. ALOPURINOL [Concomitant]
     Active Substance: ALLOPURINOL
     Indication: PROPHYLAXIS
     Dosage: 100 MILLIGRAM
  2. CYCLOPHOSPHAMIDE. [Suspect]
     Active Substance: CYCLOPHOSPHAMIDE
     Indication: PLASMA CELL MYELOMA
     Dosage: 50 MILLIGRAM, 28 DAYS
     Route: 065
     Dates: start: 20191203
  3. ERYTHROPOIETIN [Concomitant]
     Active Substance: ERYTHROPOIETIN
     Indication: ANAEMIA PROPHYLAXIS
  4. MAGNESIO?BIO [Concomitant]
     Indication: HYPERCALCAEMIA
     Dosage: 1
     Dates: start: 20200303
  5. POMALYST [Suspect]
     Active Substance: POMALIDOMIDE
     Indication: MYELODYSPLASTIC SYNDROME
     Route: 065
     Dates: start: 20191203, end: 20200225
  6. PREDNISONA [Concomitant]
     Active Substance: PREDNISONE
     Indication: HYPERCALCAEMIA
  7. LEVOFLOXACIN. [Concomitant]
     Active Substance: LEVOFLOXACIN
     Indication: DIARRHOEA
     Dosage: 1
     Dates: start: 20200218, end: 20200224
  8. AMIKACIN. [Concomitant]
     Active Substance: AMIKACIN
     Indication: PYREXIA
     Dates: start: 20200212
  9. PANTOPRAZOLE [Concomitant]
     Active Substance: PANTOPRAZOLE
     Indication: GASTRITIS PROPHYLAXIS
     Dosage: 20 MILLIGRAM
  10. G?CSF [Concomitant]
     Active Substance: GRANULOCYTE COLONY-STIMULATING FACTOR NOS
     Indication: PROPHYLAXIS
  11. DEXAMETHASONE. [Suspect]
     Active Substance: DEXAMETHASONE
     Indication: MYELODYSPLASTIC SYNDROME
     Route: 065
     Dates: start: 20191203, end: 20200225
  12. DEXAMETHASONE. [Suspect]
     Active Substance: DEXAMETHASONE
     Dosage: 20 MILLIGRAM
     Route: 065
     Dates: start: 20191203
  13. CYCLOPHOSPHAMIDE. [Suspect]
     Active Substance: CYCLOPHOSPHAMIDE
     Indication: MYELODYSPLASTIC SYNDROME
     Route: 065
     Dates: start: 20191203, end: 20200225
  14. PREDNISONA [Concomitant]
     Active Substance: PREDNISONE
     Indication: ACUTE KIDNEY INJURY
     Dosage: 1
     Dates: start: 20200303
  15. POMALYST [Suspect]
     Active Substance: POMALIDOMIDE
     Indication: PLASMA CELL MYELOMA
     Dosage: 3 MILLIGRAM, 28 DAYS
     Route: 065
     Dates: start: 20191203
  16. DUODART [Concomitant]
     Active Substance: DUTASTERIDE\TAMSULOSIN
     Indication: BENIGN PROSTATIC HYPERPLASIA
     Dosage: 0.5 MILLIGRAM

REACTIONS (8)
  - Acute kidney injury [Recovered/Resolved]
  - Hypercalcaemia [Recovered/Resolved]
  - Hypercalcaemia [Recovered/Resolved]
  - Fall [Unknown]
  - Renal impairment [Unknown]
  - Acute kidney injury [Recovered/Resolved]
  - Diarrhoea [Recovered/Resolved]
  - Diarrhoea [Unknown]

NARRATIVE: CASE EVENT DATE: 20191207
